FAERS Safety Report 20722140 (Version 1)
Quarter: 2022Q2

REPORT INFORMATION
  Report Type: Report from Study
  Country: CA (occurrence: CA)
  Receive Date: 20220418
  Receipt Date: 20220418
  Transmission Date: 20220721
  Serious: Yes (Hospitalization)
  Sender: FDA-Public Use
  Company Number: CA-ABBVIE-22P-028-4356050-00

PATIENT
  Age: 83 Year
  Sex: Male
  Weight: 91 kg

DRUGS (2)
  1. IBRUTINIB [Suspect]
     Active Substance: IBRUTINIB
     Indication: Chronic lymphocytic leukaemia
     Dosage: CYCLE 28 DAYS
     Route: 048
     Dates: start: 20190418, end: 20220322
  2. IBRUTINIB [Suspect]
     Active Substance: IBRUTINIB
     Dosage: CYCLE 28 DAYS
     Route: 048
     Dates: start: 20220323

REACTIONS (3)
  - Abscess neck [Recovering/Resolving]
  - Localised oedema [Recovering/Resolving]
  - Haematoma [Recovering/Resolving]

NARRATIVE: CASE EVENT DATE: 20220321
